FAERS Safety Report 5996646-X (Version None)
Quarter: 2008Q4

REPORT INFORMATION
  Report Type: 
  Country: None (occurrence: None)
  Receive Date: 20081212
  Receipt Date: 20081201
  Transmission Date: 20090506
  Serious: Yes (Hospitalization)
  Sender: FDA-Public Use
  Company Number: DK-NICOBRDEVP-2008-06810

PATIENT
  Sex: Male

DRUGS (1)
  1. KENTERA (WATSON LABORATORIES) [Suspect]
     Indication: DRUG USE FOR UNKNOWN INDICATION
     Dosage: 3.9 MG, Q24H
     Route: 062
     Dates: start: 20081105

REACTIONS (8)
  - ABDOMINAL PAIN [None]
  - APPLICATION SITE ERYTHEMA [None]
  - APPLICATION SITE PRURITUS [None]
  - DYSPNOEA [None]
  - IRRITABILITY [None]
  - NAUSEA [None]
  - PYREXIA [None]
  - VOMITING [None]
